FAERS Safety Report 9862088 (Version 1)
Quarter: 2014Q1

REPORT INFORMATION
  Report Type: Spontaneous
  Country: US (occurrence: None)
  Receive Date: 20140131
  Receipt Date: 20140131
  Transmission Date: 20141002
  Serious: Yes (Life-Threatening, Hospitalization)
  Sender: FDA-Public Use
  Company Number: None

PATIENT
  Age: 67 Year
  Sex: Male
  Weight: 83.5 kg

DRUGS (1)
  1. PIPERACILLIN/TAZOBACTAM [Suspect]
     Dates: start: 20130419, end: 20130419

REACTIONS (5)
  - Hypoxia [None]
  - Erythema [None]
  - Hypercapnia [None]
  - Drug hypersensitivity [None]
  - Blood pressure decreased [None]
